FAERS Safety Report 24460373 (Version 8)
Quarter: 2025Q1

REPORT INFORMATION
  Report Type: Spontaneous
  Country: PL (occurrence: PL)
  Receive Date: 20241018
  Receipt Date: 20250316
  Transmission Date: 20250409
  Serious: Yes (Hospitalization)
  Sender: AUROBINDO
  Company Number: PL-SYNOPTIS-008-L-0001

PATIENT
  Age: 26 Year
  Sex: Female

DRUGS (37)
  1. ALPRAZOLAM [Suspect]
     Active Substance: ALPRAZOLAM
     Indication: Persistent genital arousal disorder
     Dosage: 0.5 MILLIGRAM, 3 TIMES A DAY
     Route: 065
  2. ALPRAZOLAM [Suspect]
     Active Substance: ALPRAZOLAM
     Indication: Anxiety
  3. ALPRAZOLAM [Suspect]
     Active Substance: ALPRAZOLAM
     Indication: Fear
  4. SERTRALINE [Suspect]
     Active Substance: SERTRALINE HYDROCHLORIDE
     Indication: Depression
     Route: 065
  5. SERTRALINE [Suspect]
     Active Substance: SERTRALINE HYDROCHLORIDE
     Dosage: 50 MILLIGRAM, ONCE A DAY
     Route: 065
  6. FLUCONAZOLE [Suspect]
     Active Substance: FLUCONAZOLE
     Indication: Urogenital disorder
     Route: 048
  7. IBUPROFEN [Suspect]
     Active Substance: IBUPROFEN
     Indication: Urogenital disorder
     Route: 065
  8. AMOXICILLIN\CLAVULANIC ACID [Suspect]
     Active Substance: AMOXICILLIN\CLAVULANIC ACID
     Indication: Persistent genital arousal disorder
     Route: 067
  9. CLOTRIMAZOLE [Suspect]
     Active Substance: CLOTRIMAZOLE
     Indication: Persistent genital arousal disorder
     Route: 067
  10. CLOTRIMAZOLE [Suspect]
     Active Substance: CLOTRIMAZOLE
     Indication: Urogenital disorder
  11. CETIRIZINE [Suspect]
     Active Substance: CETIRIZINE HYDROCHLORIDE
     Indication: Persistent genital arousal disorder
     Route: 065
  12. CETIRIZINE [Suspect]
     Active Substance: CETIRIZINE HYDROCHLORIDE
     Indication: Urogenital disorder
  13. CIPROFLOXACIN [Suspect]
     Active Substance: CIPROFLOXACIN
     Indication: Persistent genital arousal disorder
     Route: 065
  14. CIPROFLOXACIN [Suspect]
     Active Substance: CIPROFLOXACIN
     Indication: Urogenital disorder
  15. FLUCONAZOLE [Suspect]
     Active Substance: FLUCONAZOLE
     Indication: Persistent genital arousal disorder
     Route: 048
  16. FLUCONAZOLE [Suspect]
     Active Substance: FLUCONAZOLE
     Indication: Persistent genital arousal disorder
     Route: 048
  17. FLUCONAZOLE [Suspect]
     Active Substance: FLUCONAZOLE
     Indication: Persistent genital arousal disorder
     Route: 048
  18. FLUCONAZOLE [Suspect]
     Active Substance: FLUCONAZOLE
     Indication: Persistent genital arousal disorder
     Route: 048
  19. FURAZIDINE [Suspect]
     Active Substance: FURAZIDINE
     Indication: Persistent genital arousal disorder
     Route: 065
  20. FURAZIDINE [Suspect]
     Active Substance: FURAZIDINE
     Indication: Urogenital disorder
  21. FURAZIDINE [Suspect]
     Active Substance: FURAZIDINE
     Indication: Persistent genital arousal disorder
     Route: 065
  22. HYDROXYZINE [Suspect]
     Active Substance: HYDROXYZINE HYDROCHLORIDE
     Indication: Persistent genital arousal disorder
     Route: 065
  23. HYDROXYZINE [Suspect]
     Active Substance: HYDROXYZINE HYDROCHLORIDE
     Indication: Urogenital disorder
  24. HYDROXYZINE [Suspect]
     Active Substance: HYDROXYZINE HYDROCHLORIDE
     Indication: Persistent genital arousal disorder
     Route: 065
  25. IBUPROFEN [Suspect]
     Active Substance: IBUPROFEN
     Indication: Persistent genital arousal disorder
     Route: 065
  26. IBUPROFEN [Suspect]
     Active Substance: IBUPROFEN
     Indication: Persistent genital arousal disorder
     Route: 065
  27. ACETAMINOPHEN [Suspect]
     Active Substance: ACETAMINOPHEN
     Indication: Persistent genital arousal disorder
     Route: 065
  28. NATAMYCIN [Suspect]
     Active Substance: NATAMYCIN
     Indication: Persistent genital arousal disorder
     Route: 067
  29. NATAMYCIN [Suspect]
     Active Substance: NATAMYCIN
     Indication: Urogenital disorder
  30. ACETAMINOPHEN [Suspect]
     Active Substance: ACETAMINOPHEN
     Indication: Persistent genital arousal disorder
     Route: 065
  31. ACETAMINOPHEN [Suspect]
     Active Substance: ACETAMINOPHEN
     Indication: Urogenital disorder
  32. ACETAMINOPHEN\CODEINE PHOSPHATE [Suspect]
     Active Substance: ACETAMINOPHEN\CODEINE PHOSPHATE
     Indication: Urogenital disorder
     Route: 065
  33. TIANEPTINE [Suspect]
     Active Substance: TIANEPTINE
     Indication: Persistent genital arousal disorder
     Route: 065
  34. TIANEPTINE [Suspect]
     Active Substance: TIANEPTINE
     Indication: Urogenital disorder
  35. CRANBERRY [Suspect]
     Active Substance: CRANBERRY
     Indication: Persistent genital arousal disorder
     Route: 065
  36. CRANBERRY [Suspect]
     Active Substance: CRANBERRY
     Indication: Urogenital disorder
  37. GENTAMICIN [Suspect]
     Active Substance: GENTAMICIN
     Indication: Product use in unapproved indication
     Route: 067

REACTIONS (12)
  - Burning sensation [Recovered/Resolved]
  - Condition aggravated [Recovered/Resolved]
  - Dysaesthesia [Recovered/Resolved]
  - Persistent genital arousal disorder [Recovered/Resolved]
  - Pain [Recovered/Resolved]
  - Anxiety [Recovered/Resolved]
  - Drug interaction [Unknown]
  - Disturbance in sexual arousal [Recovered/Resolved]
  - Sexual dysfunction [Recovered/Resolved]
  - Perineal pain [Recovered/Resolved]
  - Female reproductive tract disorder [Recovered/Resolved]
  - Genital pain [Recovered/Resolved]
